FAERS Safety Report 11310333 (Version 1)
Quarter: 2015Q3

REPORT INFORMATION
  Report Type: Spontaneous
  Country: US (occurrence: US)
  Receive Date: 20150724
  Receipt Date: 20150724
  Transmission Date: 20151125
  Serious: Yes (Hospitalization)
  Sender: FDA-Public Use
  Company Number: US-PURDUE-USA-2015-0125116

PATIENT
  Sex: Male

DRUGS (3)
  1. COLACE [Suspect]
     Active Substance: DOCUSATE SODIUM
     Indication: POST PROCEDURAL CONSTIPATION
     Dosage: 3-4 TABLETS 50 MG, DAILY
     Route: 048
     Dates: start: 20150718
  2. OXYCONTIN [Suspect]
     Active Substance: OXYCODONE HYDROCHLORIDE
     Indication: POSTOPERATIVE ANALGESIA
     Dosage: 20 MG, BID
     Route: 048
     Dates: start: 20150717, end: 20150719
  3. ENDOCET [Concomitant]
     Active Substance: ACETAMINOPHEN\OXYCODONE HYDROCHLORIDE
     Indication: PAIN
     Dosage: 2 TABLETS 10/325 MG, Q4H
     Route: 048
     Dates: start: 20150717, end: 20150719

REACTIONS (6)
  - Hypopnoea [Recovered/Resolved]
  - Tremor [Recovered/Resolved]
  - Abnormal dreams [Recovered/Resolved]
  - Insomnia [Recovered/Resolved]
  - Restlessness [Recovered/Resolved]
  - Intestinal obstruction [Recovered/Resolved]

NARRATIVE: CASE EVENT DATE: 20150718
